FAERS Safety Report 14158600 (Version 1)
Quarter: 2017Q4

REPORT INFORMATION
  Report Type: Spontaneous
  Country: US (occurrence: US)
  Receive Date: 20171106
  Receipt Date: 20171106
  Transmission Date: 20180321
  Serious: No
  Sender: FDA-Public Use
  Company Number: US-SHIRE-US201725547

PATIENT
  Age: 22 Year
  Sex: Female

DRUGS (1)
  1. VYVANSE [Suspect]
     Active Substance: LISDEXAMFETAMINE DIMESYLATE
     Indication: PRODUCT USED FOR UNKNOWN INDICATION
     Dosage: UNK
     Dates: start: 20170823, end: 201709

REACTIONS (8)
  - Hypoaesthesia [Unknown]
  - Peripheral swelling [Unknown]
  - Pain in extremity [Unknown]
  - Depression [Unknown]
  - Middle insomnia [Unknown]
  - Feeling cold [Unknown]
  - Erythema [Unknown]
  - Arthralgia [Unknown]
